FAERS Safety Report 9405911 (Version 1)
Quarter: 2013Q3

REPORT INFORMATION
  Report Type: Report from Study
  Country: SE (occurrence: SE)
  Receive Date: 20130717
  Receipt Date: 20130717
  Transmission Date: 20140515
  Serious: Yes (Other)
  Sender: FDA-Public Use
  Company Number: SE-VIIV HEALTHCARE LIMITED-A1033609A

PATIENT
  Age: 40 Year
  Sex: Female

DRUGS (3)
  1. ZIAGEN [Suspect]
     Indication: ANTIRETROVIRAL THERAPY
     Route: 065
     Dates: start: 20120727
  2. EPIVIR [Suspect]
     Indication: HIV INFECTION
     Route: 065
     Dates: start: 20120727
  3. EDURANT [Suspect]
     Indication: ANTIRETROVIRAL THERAPY
     Dosage: 25MG PER DAY
     Route: 048
     Dates: start: 20120727

REACTIONS (2)
  - Abortion spontaneous [Unknown]
  - Exposure during pregnancy [Unknown]
